FAERS Safety Report 5015002-4 (Version None)
Quarter: 2006Q2

REPORT INFORMATION
  Report Type: 
  Country: None (occurrence: None)
  Receive Date: 20060530
  Receipt Date: 20060515
  Transmission Date: 20061013
  Serious: Yes (Hospitalization)
  Sender: FDA-Public Use
  Company Number: TRP_0779_2006

PATIENT
  Age: 50 Year
  Sex: Male
  Weight: 63.5036 kg

DRUGS (4)
  1. RIBASPHERE [Suspect]
     Indication: HEPATITIS C
     Dosage: DF PO
     Route: 048
     Dates: start: 20060224
  2. PEG-INTRON [Suspect]
     Indication: HEPATITIS C
     Dosage: DF SC
     Route: 058
     Dates: start: 20060424
  3. RIBASPHERE [Suspect]
     Indication: HEPATITIS C
     Dosage: DF PO
     Route: 048
     Dates: start: 20060101
  4. PEG-INTRON [Suspect]
     Indication: HEPATITIS C
     Dosage: DF SC
     Route: 058
     Dates: start: 20060101

REACTIONS (3)
  - ANAEMIA [None]
  - HAEMATEMESIS [None]
  - PLATELET COUNT DECREASED [None]
